FAERS Safety Report 21098117 (Version 1)
Quarter: 2022Q3

REPORT INFORMATION
  Report Type: Report from Study
  Country: US (occurrence: US)
  Receive Date: 20220719
  Receipt Date: 20220719
  Transmission Date: 20221027
  Serious: Yes (Hospitalization)
  Sender: FDA-Public Use
  Company Number: US-GILEAD-2022-0589722

PATIENT
  Age: 9 Year
  Sex: Male

DRUGS (24)
  1. AZTREONAM LYSINE [Suspect]
     Active Substance: AZTREONAM LYSINE
     Indication: Cystic fibrosis
     Dosage: 75 MG, TID, 28 DAYS ON/28 DAYS OFF
     Route: 055
  2. CELLCEPT [Concomitant]
     Active Substance: MYCOPHENOLATE MOFETIL
  3. LEVALBUTEROL [Concomitant]
     Active Substance: LEVALBUTEROL
  4. FAMOTIDINE [Concomitant]
     Active Substance: FAMOTIDINE
  5. AZITHROMYCIN [Concomitant]
     Active Substance: AZITHROMYCIN
  6. LEVOTHYROXINE [Concomitant]
     Active Substance: LEVOTHYROXINE
  7. LISINOPRIL [Concomitant]
     Active Substance: LISINOPRIL
  8. ACETAMINOPHEN [Concomitant]
     Active Substance: ACETAMINOPHEN
  9. LORATADINE [Concomitant]
     Active Substance: LORATADINE
  10. AMLODIPINE BESYLATE [Concomitant]
     Active Substance: AMLODIPINE BESYLATE
  11. HYDROXYZINE HYDROCHLORIDE [Concomitant]
     Active Substance: HYDROXYZINE HYDROCHLORIDE
  12. SIMVASTATIN [Concomitant]
     Active Substance: SIMVASTATIN
  13. ESOMEPRAZOLE MAGNESIUM [Concomitant]
     Active Substance: ESOMEPRAZOLE MAGNESIUM
  14. VITAMIN D NOS [Concomitant]
     Active Substance: VITAMIN D NOS
  15. FLUOXETINE HYDROCHLORIDE [Concomitant]
     Active Substance: FLUOXETINE HYDROCHLORIDE
  16. SODIUM CHLORIDE [Concomitant]
     Active Substance: SODIUM CHLORIDE
  17. PREDNISOLONE ACETATE [Concomitant]
     Active Substance: PREDNISOLONE ACETATE
  18. MELATONIN [Concomitant]
     Active Substance: MELATONIN
  19. FERROUS SULFATE [Concomitant]
     Active Substance: FERROUS SULFATE
  20. ONDANSETRON HCL [Concomitant]
     Active Substance: ONDANSETRON HYDROCHLORIDE
  21. GABAPENTIN [Concomitant]
     Active Substance: GABAPENTIN
  22. CYCLOSPORINE [Concomitant]
     Active Substance: CYCLOSPORINE
  23. ATOVAQUONE [Concomitant]
     Active Substance: ATOVAQUONE
  24. CALCIUM CARBONATE [Concomitant]
     Active Substance: CALCIUM CARBONATE

REACTIONS (1)
  - Dyspnoea [Unknown]
